FAERS Safety Report 5863212-6 (Version None)
Quarter: 2008Q3

REPORT INFORMATION
  Report Type: 
  Country: None (occurrence: None)
  Receive Date: 20080828
  Receipt Date: 20080819
  Transmission Date: 20090109
  Serious: Yes (Other)
  Sender: FDA-Public Use
  Company Number: NL-ABBOTT-08P-114-0471244-00

PATIENT
  Age: 62 Year
  Sex: Female

DRUGS (3)
  1. HUMIRA [Suspect]
     Indication: CROHN'S DISEASE
     Dates: start: 20070101, end: 20080801
  2. METHOTREXATE [Concomitant]
     Indication: CROHN'S DISEASE
  3. STEROID [Concomitant]
     Indication: CROHN'S DISEASE

REACTIONS (1)
  - RASH PUSTULAR [None]
